FAERS Safety Report 13006454 (Version 1)
Quarter: 2016Q4

REPORT INFORMATION
  Report Type: Spontaneous
  Country: US (occurrence: US)
  Receive Date: 20161206
  Receipt Date: 20161206
  Transmission Date: 20170207
  Serious: No
  Sender: FDA-Public Use
  Company Number: None

PATIENT
  Age: 24 Year
  Sex: Female
  Weight: 67 kg

DRUGS (1)
  1. ACYCLOVIR. [Suspect]
     Active Substance: ACYCLOVIR
     Indication: HERPES ZOSTER
     Dosage: ?          QUANTITY:5 TABLET(S);?
     Route: 048
     Dates: start: 20161205, end: 20161206

REACTIONS (7)
  - Dyspnoea [None]
  - Discomfort [None]
  - Confusional state [None]
  - Fatigue [None]
  - Cognitive disorder [None]
  - Chest discomfort [None]
  - Fear [None]

NARRATIVE: CASE EVENT DATE: 20161206
